FAERS Safety Report 20358965 (Version 1)
Quarter: 2022Q1

REPORT INFORMATION
  Report Type: Spontaneous
  Country: NZ (occurrence: NZ)
  Receive Date: 20220120
  Receipt Date: 20220120
  Transmission Date: 20220424
  Serious: Yes (Other)
  Sender: FDA-Public Use
  Company Number: NZ-BAXTER-2022BAX000687

PATIENT
  Sex: Male

DRUGS (6)
  1. DEXTROSE [Suspect]
     Active Substance: DEXTROSE
     Indication: Medication dilution
     Dosage: OXALIPLATIN WITH 5% GLUCOSE
     Route: 042
     Dates: start: 20211206, end: 20211206
  2. DEXTROSE [Suspect]
     Active Substance: DEXTROSE
     Dosage: DOSE RE-INTRODUCED
     Route: 042
     Dates: start: 20211216, end: 20211216
  3. ONDANSETRON [Suspect]
     Active Substance: ONDANSETRON
     Indication: Product used for unknown indication
     Route: 065
     Dates: start: 20211216
  4. OXALIPLATIN [Suspect]
     Active Substance: OXALIPLATIN
     Indication: Product used for unknown indication
     Dosage: OVER 2 HOURS
     Route: 042
     Dates: start: 20211206, end: 20211206
  5. OXALIPLATIN [Suspect]
     Active Substance: OXALIPLATIN
     Dosage: DOSE RE-INTRODUCED
     Route: 042
     Dates: start: 20211216, end: 20211216
  6. APREPITANT [Suspect]
     Active Substance: APREPITANT
     Indication: Product used for unknown indication
     Route: 065
     Dates: start: 20211216

REACTIONS (10)
  - Adverse drug reaction [Unknown]
  - Dyspepsia [Recovered/Resolved]
  - Erythema [Recovered/Resolved]
  - Dizziness [Recovered/Resolved]
  - Paraesthesia [Recovered/Resolved]
  - Ocular hyperaemia [Recovered/Resolved]
  - Dysphagia [Recovered/Resolved]
  - Nausea [Recovered/Resolved]
  - Hot flush [Recovered/Resolved]
  - Hypotension [Recovered/Resolved]

NARRATIVE: CASE EVENT DATE: 20211201
